FAERS Safety Report 5413582-8 (Version None)
Quarter: 2007Q3

REPORT INFORMATION
  Report Type: 
  Country: None (occurrence: None)
  Receive Date: 20070810
  Receipt Date: 20070723
  Transmission Date: 20080115
  Serious: Yes (Other)
  Sender: FDA-Public Use
  Company Number: E3810-01103-SPO-US

PATIENT
  Age: 52 Year
  Sex: Male

DRUGS (1)
  1. ACIPHEX [Suspect]
     Dosage: 20 MG, ORAL
     Route: 048
     Dates: start: 20050301, end: 20050301

REACTIONS (3)
  - ANGIOEDEMA [None]
  - RASH GENERALISED [None]
  - SCROTAL OEDEMA [None]
